FAERS Safety Report 5921256-X (Version None)
Quarter: 2008Q4

REPORT INFORMATION
  Report Type: 
  Country: None (occurrence: None)
  Receive Date: 20081014
  Receipt Date: 20081001
  Transmission Date: 20090506
  Serious: Yes (Other)
  Sender: FDA-Public Use
  Company Number: 2008SP020057

PATIENT
  Sex: Male

DRUGS (1)
  1. ECURAL (MOMETASONE FUROATE (TOPICAL))  (MOMETASONE FUROATE) [Suspect]
     Indication: DRUG USE FOR UNKNOWN INDICATION
     Dosage: OPH
     Route: 047

REACTIONS (2)
  - GLAUCOMA [None]
  - INCORRECT ROUTE OF DRUG ADMINISTRATION [None]
